FAERS Safety Report 9943717 (Version 2)
Quarter: 2014Q1

REPORT INFORMATION
  Report Type: Report from Study
  Country: US (occurrence: US)
  Receive Date: 20140303
  Receipt Date: 20140303
  Transmission Date: 20141002
  Serious: Yes (Hospitalization)
  Sender: FDA-Public Use
  Company Number: US-ABBVIE-13P-163-1031873-00

PATIENT
  Age: 65 Year
  Sex: Female
  Weight: 74.8 kg

DRUGS (14)
  1. HUMIRA [Suspect]
     Indication: RHEUMATOID ARTHRITIS
     Route: 058
     Dates: start: 20060918, end: 20120815
  2. HUMIRA [Suspect]
     Dates: start: 2013
  3. CLONIDINE [Concomitant]
     Indication: PRODUCT USED FOR UNKNOWN INDICATION
  4. LISINOPRIL/HCTZ [Concomitant]
     Indication: PRODUCT USED FOR UNKNOWN INDICATION
  5. ZOCOR [Concomitant]
     Indication: PRODUCT USED FOR UNKNOWN INDICATION
  6. CEFDINIR [Concomitant]
     Indication: PRODUCT USED FOR UNKNOWN INDICATION
  7. LISINOPRIL [Concomitant]
     Indication: PRODUCT USED FOR UNKNOWN INDICATION
  8. DILTIAZEM [Concomitant]
     Indication: PRODUCT USED FOR UNKNOWN INDICATION
  9. LEFLUNOMIDE [Concomitant]
     Indication: PRODUCT USED FOR UNKNOWN INDICATION
     Route: 048
  10. PREDNISONE [Concomitant]
     Indication: PRODUCT USED FOR UNKNOWN INDICATION
     Route: 048
  11. PRAZOSIN [Concomitant]
     Indication: PRODUCT USED FOR UNKNOWN INDICATION
  12. NIACIN [Concomitant]
     Indication: PRODUCT USED FOR UNKNOWN INDICATION
  13. JANUVIA [Concomitant]
     Indication: PRODUCT USED FOR UNKNOWN INDICATION
  14. PRADAXA [Concomitant]
     Indication: PRODUCT USED FOR UNKNOWN INDICATION

REACTIONS (3)
  - Respiratory tract infection fungal [Not Recovered/Not Resolved]
  - Cough [Recovered/Resolved]
  - Upper-airway cough syndrome [Unknown]
